FAERS Safety Report 4879747-9 (Version None)
Quarter: 2006Q1

REPORT INFORMATION
  Report Type: 
  Country: None (occurrence: None)
  Receive Date: 20060113
  Receipt Date: 20060110
  Transmission Date: 20060701
  Serious: Yes (Disabling)
  Sender: FDA-Public Use
  Company Number: US-GLAXOSMITHKLINE-A0588576A

PATIENT
  Age: 57 Year
  Sex: Male

DRUGS (3)
  1. AVANDAMET [Suspect]
     Dosage: 1VA SEE DOSAGE TEXT
     Route: 048
  2. HYDROCHLOROTHIAZIDE [Concomitant]
  3. BENICAR [Concomitant]

REACTIONS (4)
  - BLOOD GLUCOSE INCREASED [None]
  - DIZZINESS [None]
  - NECK PAIN [None]
  - PARAESTHESIA [None]
